FAERS Safety Report 9060075 (Version 1)
Quarter: 2013Q2

REPORT INFORMATION
  Report Type: Spontaneous
  Country: US (occurrence: None)
  Receive Date: 20130207
  Receipt Date: 20130207
  Transmission Date: 20140414
  Serious: Yes (Hospitalization)
  Sender: FDA-Public Use
  Company Number: None

PATIENT
  Age: 63 Year
  Sex: Male
  Weight: 74.9 kg

DRUGS (1)
  1. IBRUTINIB/ PCI-32765 [Suspect]
     Indication: WALDENSTROM^S MACROGLOBULINAEMIA
     Route: 048
     Dates: start: 20121204, end: 20130115

REACTIONS (2)
  - Pyrexia [None]
  - Tachycardia [None]
